FAERS Safety Report 20751504 (Version 1)
Quarter: 2022Q2

REPORT INFORMATION
  Report Type: Spontaneous
  Country: US (occurrence: None)
  Receive Date: 20220426
  Receipt Date: 20220426
  Transmission Date: 20220721
  Serious: No
  Sender: FDA-Public Use
  Company Number: 2022A131156

PATIENT
  Age: 80 Year
  Sex: Female
  Weight: 48.5 kg

DRUGS (1)
  1. BEVESPI AEROSPHERE [Suspect]
     Active Substance: FORMOTEROL FUMARATE\GLYCOPYRROLATE
     Indication: Chronic obstructive pulmonary disease
     Dosage: BEVESPI AEROSPHERE 9/4.8MCG 2 PUFFS
     Route: 055
     Dates: start: 2021

REACTIONS (5)
  - Cataract [Not Recovered/Not Resolved]
  - Device use issue [Recovered/Resolved]
  - Drug dose omission by device [Not Recovered/Not Resolved]
  - Wrong technique in device usage process [Unknown]
  - Device malfunction [Unknown]

NARRATIVE: CASE EVENT DATE: 20210101
